FAERS Safety Report 4380361-2 (Version None)
Quarter: 2004Q2

REPORT INFORMATION
  Report Type: 
  Country: None (occurrence: None)
  Receive Date: 20040618
  Receipt Date: 20040607
  Transmission Date: 20050107
  Serious: Yes (Life-Threatening)
  Sender: FDA-Public Use
  Company Number: 200412272FR

PATIENT
  Age: 79 Year
  Sex: Female
  Weight: 92 kg

DRUGS (6)
  1. LOVENOX [Suspect]
     Indication: DIALYSIS
     Route: 058
     Dates: start: 20040503, end: 20040514
  2. MOPRAL [Concomitant]
     Route: 048
  3. NITRIDERM TTS 5 MG/24 H [Concomitant]
     Route: 061
  4. LEVOTHYROXINE SODIUM [Concomitant]
     Indication: HYPOTHYROIDISM
     Route: 048
  5. ASPEGIC 325 [Concomitant]
     Route: 048
  6. MIXTARD HUMAN [Concomitant]
     Indication: DIABETES MELLITUS
     Route: 058

REACTIONS (11)
  - BRONCHOSPASM [None]
  - CIRCULATORY COLLAPSE [None]
  - CYANOSIS [None]
  - DIALYSIS [None]
  - DYSPNOEA [None]
  - ERYTHEMA [None]
  - FLUSHING [None]
  - HYPOVOLAEMIA [None]
  - HYPOXIA [None]
  - MALAISE [None]
  - NAUSEA [None]
